FAERS Safety Report 18479671 (Version 1)
Quarter: 2020Q4

REPORT INFORMATION
  Report Type: Spontaneous
  Country: JP (occurrence: JP)
  Receive Date: 20201109
  Receipt Date: 20201109
  Transmission Date: 20210114
  Serious: Yes (Life-Threatening, Hospitalization)
  Sender: FDA-Public Use
  Company Number: JP-TEVA-2020-JP-1846123

PATIENT
  Age: 45 Year
  Sex: Female

DRUGS (4)
  1. WARFARIN [Suspect]
     Active Substance: WARFARIN
     Indication: THROMBOSIS PROPHYLAXIS
     Route: 065
  2. ASPIRIN. [Suspect]
     Active Substance: ASPIRIN
     Indication: THROMBOSIS PROPHYLAXIS
     Route: 065
  3. LEUPRORELIN [Suspect]
     Active Substance: LEUPROLIDE ACETATE
     Indication: ADENOMYOSIS
     Route: 065
  4. DIENOGEST [Suspect]
     Active Substance: DIENOGEST
     Indication: ADENOMYOSIS
     Dosage: 2 MILLIGRAM DAILY;
     Route: 065

REACTIONS (4)
  - Hepatic function abnormal [Recovered/Resolved]
  - Anaemia [Recovering/Resolving]
  - Shock haemorrhagic [Recovered/Resolved]
  - Uterine haemorrhage [Recovered/Resolved]
